FAERS Safety Report 8608603 (Version 2)
Quarter: 2017Q3

REPORT INFORMATION
  Report Type: Spontaneous
  Country: JP (occurrence: JP)
  Receive Date: 20120611
  Receipt Date: 20170705
  Transmission Date: 20171128
  Serious: No
  Sender: FDA-Public Use
  Company Number: JP-GLAXOSMITHKLINE-B0806828A

PATIENT
  Sex: Male

DRUGS (2)
  1. AVOLVE [Suspect]
     Active Substance: DUTASTERIDE
     Dosage: 0.5 MG, QD
     Route: 048
     Dates: start: 20111104
  2. URIEF [Concomitant]
     Active Substance: SILODOSIN
     Route: 048
     Dates: start: 20111207

REACTIONS (2)
  - Visual impairment [Unknown]
  - Treatment noncompliance [Unknown]
